FAERS Safety Report 19359665 (Version 2)
Quarter: 2021Q2

REPORT INFORMATION
  Report Type: Spontaneous
  Country: GB (occurrence: GB)
  Receive Date: 20210602
  Receipt Date: 20210614
  Transmission Date: 20210717
  Serious: Yes (Other)
  Sender: FDA-Public Use
  Company Number: GB-MYLANLABS-2021M1031360

PATIENT
  Age: 28 Year
  Sex: Male
  Weight: 76.5 kg

DRUGS (2)
  1. DERMOVATE [Concomitant]
     Active Substance: CLOBETASOL
     Indication: ILL-DEFINED DISORDER
     Dosage: UNK
  2. ISOTRETINOIN. [Suspect]
     Active Substance: ISOTRETINOIN
     Indication: ACNE
     Dosage: 20,MG, THEN 60MG, THEN 40MG
     Route: 048
     Dates: start: 20201012, end: 20210412

REACTIONS (6)
  - Lichen sclerosus [Unknown]
  - Penile haemorrhage [Recovered/Resolved with Sequelae]
  - Sensitive skin [Recovered/Resolved with Sequelae]
  - Dry skin [Recovered/Resolved with Sequelae]
  - Medication error [Unknown]
  - Hypersensitivity [Unknown]

NARRATIVE: CASE EVENT DATE: 20210214
